FAERS Safety Report 21196402 (Version 1)
Quarter: 2022Q3

REPORT INFORMATION
  Report Type: Report from Study
  Country: US (occurrence: US)
  Receive Date: 20220810
  Receipt Date: 20220810
  Transmission Date: 20221027
  Serious: Yes (Hospitalization, Other)
  Sender: FDA-Public Use
  Company Number: US-HORIZON THERAPEUTICS-HZN-2022-002122

PATIENT

DRUGS (2)
  1. TEPEZZA [Suspect]
     Active Substance: TEPROTUMUMAB-TRBW
     Indication: Endocrine ophthalmopathy
     Dosage: 1ST INFUSION
     Route: 042
     Dates: start: 20220316
  2. TEPEZZA [Suspect]
     Active Substance: TEPROTUMUMAB-TRBW
     Dosage: 5TH INFUSION
     Route: 042
     Dates: start: 20220627

REACTIONS (10)
  - Blood sodium decreased [Unknown]
  - Dehydration [Unknown]
  - Dizziness [Unknown]
  - Blood glucose increased [Unknown]
  - Deafness unilateral [Unknown]
  - Hair growth abnormal [Unknown]
  - Dry skin [Unknown]
  - Blood pressure increased [Unknown]
  - Nausea [Unknown]
  - Headache [Unknown]

NARRATIVE: CASE EVENT DATE: 20220101
